FAERS Safety Report 6626873-X (Version None)
Quarter: 2010Q1

REPORT INFORMATION
  Report Type: 
  Country: None (occurrence: None)
  Receive Date: 20100311
  Receipt Date: 20100303
  Transmission Date: 20100710
  Serious: Yes (Other)
  Sender: FDA-Public Use
  Company Number: US-RB-004331-10

PATIENT
  Age: 52 Year
  Sex: Female

DRUGS (2)
  1. MUCINEX [Suspect]
     Dosage: TOOK 1 TABLET EVERY 24 HOURS FOR 3 DAYS
     Route: 048
     Dates: start: 20100228
  2. TRAZODON [Concomitant]

REACTIONS (5)
  - ABDOMINAL DISCOMFORT [None]
  - DIARRHOEA [None]
  - EPISTAXIS [None]
  - PALPITATIONS [None]
  - RASH [None]
